FAERS Safety Report 8020374-2 (Version None)
Quarter: 2012Q1

REPORT INFORMATION
  Report Type: 
  Country: None (occurrence: None)
  Receive Date: 20120103
  Receipt Date: 20111221
  Transmission Date: 20120608
  Serious: Yes (Hospitalization)
  Sender: FDA-Public Use
  Company Number: US-ELI_LILLY_AND_COMPANY-US201106006292

PATIENT
  Sex: Female

DRUGS (3)
  1. FORTEO [Suspect]
     Dosage: 20 UG, QD
     Dates: end: 20111128
  2. FORTEO [Suspect]
     Indication: OSTEOPOROSIS
     Dosage: 20 UG, QD
  3. PREDNISONE TAB [Concomitant]

REACTIONS (12)
  - CYSTITIS [None]
  - INFECTION [None]
  - ASTHENIA [None]
  - THROAT LESION [None]
  - MUSCULAR WEAKNESS [None]
  - CRYING [None]
  - INJURY [None]
  - BALANCE DISORDER [None]
  - FALL [None]
  - DEHYDRATION [None]
  - MUSCLE SPASMS [None]
  - STOMATITIS [None]
